FAERS Safety Report 13465808 (Version 1)
Quarter: 2017Q2

REPORT INFORMATION
  Report Type: Spontaneous
  Country: US (occurrence: US)
  Receive Date: 20170420
  Receipt Date: 20170420
  Transmission Date: 20170830
  Serious: Yes (Hospitalization)
  Sender: FDA-Public Use
  Company Number: None

PATIENT
  Age: 70 Year
  Sex: Female
  Weight: 129 kg

DRUGS (1)
  1. APIXABAN [Suspect]
     Active Substance: APIXABAN
     Indication: PRODUCT USED FOR UNKNOWN INDICATION
     Route: 048
     Dates: start: 20170406, end: 20170414

REACTIONS (5)
  - Dyspnoea [None]
  - Chest discomfort [None]
  - Therapy change [None]
  - Pulmonary embolism [None]
  - Treatment failure [None]

NARRATIVE: CASE EVENT DATE: 20170414
